FAERS Safety Report 9989951 (Version 1)
Quarter: 2014Q1

REPORT INFORMATION
  Report Type: Report from Study
  Country: US (occurrence: US)
  Receive Date: 20140310
  Receipt Date: 20140310
  Transmission Date: 20141002
  Serious: No
  Sender: FDA-Public Use
  Company Number: US-ABBVIE-13P-163-1130813-00

PATIENT
  Age: 40 Year
  Sex: Female

DRUGS (9)
  1. HUMIRA [Suspect]
     Indication: COLITIS ULCERATIVE
     Route: 058
     Dates: start: 20130315
  2. HYDROCHLOROTHIAZIDE [Concomitant]
     Indication: HYPERTENSION
     Dosage: 25 MG DAILY
  3. BYSTOLIC [Concomitant]
     Indication: HYPERTENSION
     Dosage: 20 MG DAILY
  4. POTASSIUM CHLORIDE [Concomitant]
     Indication: BLOOD POTASSIUM DECREASED
     Dosage: 2 PER DAY
  5. ABILIFY [Concomitant]
     Indication: POST-TRAUMATIC STRESS DISORDER
     Dosage: 10 MG DAILY
  6. PRESTIQUE [Concomitant]
     Indication: DEPRESSION
     Dosage: AT BEDTIME
  7. TRAZODONE [Concomitant]
     Indication: INSOMNIA
     Dosage: AT BEDTIME
  8. LORAZEPAM [Concomitant]
     Indication: ANXIETY
     Dosage: 2 MG DAILY
  9. MINIPRESS [Concomitant]
     Indication: POST-TRAUMATIC STRESS DISORDER
     Dosage: AT BEDTIME

REACTIONS (3)
  - Joint stiffness [Not Recovered/Not Resolved]
  - Fatigue [Not Recovered/Not Resolved]
  - Arthralgia [Not Recovered/Not Resolved]
